FAERS Safety Report 17000916 (Version 5)
Quarter: 2021Q4

REPORT INFORMATION
  Report Type: Spontaneous
  Country: US (occurrence: US)
  Receive Date: 20191106
  Receipt Date: 20211221
  Transmission Date: 20220303
  Serious: No
  Sender: FDA-Public Use
  Company Number: US-SA-2019SA299324

PATIENT
  Age: 13 Year
  Sex: Female

DRUGS (3)
  1. DUPIXENT [Suspect]
     Active Substance: DUPILUMAB
     Indication: Dermatitis atopic
     Dosage: 400 MG, 1X
     Route: 058
     Dates: start: 201910, end: 201910
  2. DUPIXENT [Suspect]
     Active Substance: DUPILUMAB
     Dosage: 200 MG (FREQUENCY: OTHER)
     Route: 058
     Dates: start: 202001
  3. DUPIXENT [Suspect]
     Active Substance: DUPILUMAB
     Dosage: 300 MG, FREQUENCY-OTHER
     Route: 058
     Dates: start: 201912

REACTIONS (5)
  - Vulvovaginal mycotic infection [Unknown]
  - Eye pain [Unknown]
  - Myalgia [Unknown]
  - Injection site pain [Unknown]
  - Oral herpes [Recovered/Resolved]

NARRATIVE: CASE EVENT DATE: 20191001
